FAERS Safety Report 4398217-8 (Version None)
Quarter: 2004Q3

REPORT INFORMATION
  Report Type: 
  Country: None (occurrence: None)
  Receive Date: 20040715
  Receipt Date: 20040707
  Transmission Date: 20050211
  Serious: Yes (Death, Hospitalization)
  Sender: FDA-Public Use
  Company Number: US-AMGEN-US082697

PATIENT
  Age: 35 Year
  Sex: Female

DRUGS (4)
  1. EPOGEN [Suspect]
     Indication: ANAEMIA OF MALIGNANT DISEASE
     Route: 058
     Dates: start: 20040601
  2. COUMADIN [Concomitant]
  3. HEPARIN [Concomitant]
  4. LOVENOX [Concomitant]

REACTIONS (1)
  - CEREBROVASCULAR ACCIDENT [None]
